FAERS Safety Report 9162530 (Version 2)
Quarter: 2014Q1

REPORT INFORMATION
  Report Type: Spontaneous
  Country: US (occurrence: None)
  Receive Date: 20130212
  Receipt Date: 20130606
  Transmission Date: 20141002
  Serious: Yes (Other)
  Sender: FDA-Public Use
  Company Number: 2013PROUSA02523

PATIENT
  Age: 67 Year
  Sex: Male

DRUGS (3)
  1. PROVENGE (SIPULEUCEL-T) SUSPENSION, 250ML [Suspect]
     Indication: PROSTATE CANCER METASTATIC
     Dosage: 250 ML, SINGLE, INTRAVENOUS
     Route: 042
     Dates: start: 20121203, end: 20121203
  2. LUPRON (LEUPRONELIN ACETATE) [Concomitant]
  3. ZOMETA (ZOLEDRONIC ACID) [Concomitant]

REACTIONS (1)
  - Renal failure chronic [None]
